FAERS Safety Report 9851402 (Version 1)
Quarter: 2014Q1

REPORT INFORMATION
  Report Type: Spontaneous
  Country: JP (occurrence: JP)
  Receive Date: 20140129
  Receipt Date: 20140129
  Transmission Date: 20141002
  Serious: Yes (Hospitalization, Other)
  Sender: FDA-Public Use
  Company Number: JP-009507513-1401JPN010862

PATIENT
  Age: 75 Year
  Sex: Male

DRUGS (2)
  1. GLACTIV [Suspect]
     Indication: TYPE 2 DIABETES MELLITUS
     Dosage: 50 MG, QD
     Route: 048
     Dates: start: 20101018, end: 20121018
  2. ACTOS [Concomitant]
     Dosage: UNK
     Dates: start: 199808, end: 201305

REACTIONS (2)
  - Pneumonia [Recovering/Resolving]
  - Dementia [Recovering/Resolving]
